FAERS Safety Report 7054438-7 (Version None)
Quarter: 2010Q4

REPORT INFORMATION
  Report Type: 
  Country: None (occurrence: None)
  Receive Date: 20101020
  Receipt Date: 20100406
  Transmission Date: 20110411
  Serious: Yes (Hospitalization, Other)
  Sender: FDA-Public Use
  Company Number: PHFR2005GB02496

PATIENT
  Sex: Female

DRUGS (3)
  1. CLOZARIL [Suspect]
     Indication: SCHIZOPHRENIA
     Dosage: 550 MG, UNK
     Route: 048
     Dates: start: 20020301
  2. NICOTINE [Concomitant]
  3. ACYCLOVIR SODIUM [Concomitant]
     Indication: PROPHYLAXIS
     Dosage: 200 MG, BID
     Dates: end: 20090128

REACTIONS (7)
  - HAEMOGLOBIN DECREASED [None]
  - HODGKIN'S DISEASE [None]
  - HODGKIN'S DISEASE NODULAR SCLEROSIS STAGE UNSPECIFIED [None]
  - LYMPHOMA [None]
  - PLATELET COUNT DECREASED [None]
  - POLYP [None]
  - WHITE BLOOD CELL COUNT DECREASED [None]
